FAERS Safety Report 6339564-X (Version None)
Quarter: 2009Q3

REPORT INFORMATION
  Report Type: 
  Country: None (occurrence: None)
  Receive Date: 20090903
  Receipt Date: 20090827
  Transmission Date: 20100115
  Serious: Yes (Hospitalization)
  Sender: FDA-Public Use
  Company Number: GB-AMGEN-UK356251

PATIENT
  Sex: Male
  Weight: 94.9 kg

DRUGS (2)
  1. PANITUMUMAB [Suspect]
     Indication: COLORECTAL CANCER
     Route: 042
     Dates: start: 20090709
  2. IRINOTECAN HCL [Suspect]
     Route: 042
     Dates: start: 20090709

REACTIONS (2)
  - DIARRHOEA [None]
  - NEUTROPENIC SEPSIS [None]
